FAERS Safety Report 10033340 (Version 3)
Quarter: 2014Q2

REPORT INFORMATION
  Report Type: Spontaneous
  Country: IT (occurrence: IT)
  Receive Date: 20140325
  Receipt Date: 20140429
  Transmission Date: 20141212
  Serious: Yes (Other)
  Sender: FDA-Public Use
  Company Number: IT-ROCHE-1339839

PATIENT
  Age: 32 Year
  Sex: Female

DRUGS (5)
  1. XOLAIR [Suspect]
     Indication: ASTHMA
     Route: 058
     Dates: start: 2008
  2. XOLAIR [Suspect]
     Route: 058
     Dates: start: 20090101
  3. XOLAIR [Suspect]
     Route: 058
     Dates: start: 20140131, end: 20140131
  4. SYMBICORT [Concomitant]
     Route: 065
  5. SINGULAIR [Concomitant]

REACTIONS (2)
  - Papillary thyroid cancer [Unknown]
  - Metastases to lymph nodes [Recovered/Resolved]
